FAERS Safety Report 8479136-4 (Version None)
Quarter: 2012Q2

REPORT INFORMATION
  Report Type: 
  Country: None (occurrence: None)
  Receive Date: 20120629
  Receipt Date: 20120620
  Transmission Date: 20120825
  Serious: Yes (Hospitalization)
  Sender: FDA-Public Use
  Company Number: US-BAXTER-2012BAX008794

PATIENT
  Sex: Female
  Weight: 90 kg

DRUGS (18)
  1. TEGRETOL [Concomitant]
     Route: 048
  2. TEGRETOL [Concomitant]
     Route: 048
  3. OXYCONTIN [Concomitant]
     Route: 048
  4. CARAFATE [Concomitant]
     Route: 048
  5. VITAMIN D [Concomitant]
     Route: 048
  6. IMURAN [Concomitant]
     Route: 048
  7. ASPIRIN [Concomitant]
     Route: 048
  8. LISINOPRIL [Concomitant]
     Route: 048
  9. GAMMAGARD LIQUID [Suspect]
     Indication: MYASTHENIA GRAVIS
     Route: 042
     Dates: start: 20100318, end: 20100319
  10. AMITRIPTYLINE HCL [Concomitant]
     Route: 048
  11. CALCIUM [Concomitant]
     Route: 048
  12. GAMMAGARD LIQUID [Suspect]
  13. AVAPRO [Concomitant]
     Route: 048
  14. OXYCODONE HCL [Concomitant]
     Route: 048
  15. NEXIUM [Concomitant]
     Route: 048
  16. IRON [Concomitant]
     Route: 048
  17. PREDNISONE TAB [Concomitant]
     Route: 048
  18. MESTINON [Concomitant]
     Dosage: 1/2 TABLET
     Route: 048

REACTIONS (3)
  - TACHYCARDIA [None]
  - PYREXIA [None]
  - MALIGNANT HYPERTENSION [None]
